FAERS Safety Report 12383158 (Version 2)
Quarter: 2016Q2

REPORT INFORMATION
  Report Type: Spontaneous
  Country: US (occurrence: US)
  Receive Date: 20160518
  Receipt Date: 20160628
  Transmission Date: 20160815
  Serious: No
  Sender: FDA-Public Use
  Company Number: US-PFIZER INC-2016229934

PATIENT
  Age: 5 Year
  Sex: Female
  Weight: 26 kg

DRUGS (7)
  1. SYNTHROID [Concomitant]
     Active Substance: LEVOTHYROXINE SODIUM
     Indication: HYPOTHYROIDISM
     Dosage: 88 UG, DAILY
  2. TRILEPTAL [Concomitant]
     Active Substance: OXCARBAZEPINE
     Indication: SEIZURE
     Dosage: 1.5 DF, 2X/DAY
  3. GENOTROPIN [Suspect]
     Active Substance: SOMATROPIN
     Indication: HYPOPITUITARISM
     Dosage: 0.2 MG 4 DAYS A WEEK AND 0.1 MG 3 DAYS A WEEK
     Route: 058
     Dates: start: 20160421, end: 20160421
  4. LEVETIRACETAM. [Concomitant]
     Active Substance: LEVETIRACETAM
     Dosage: UNK
     Route: 048
  5. GENOTROPIN [Suspect]
     Active Substance: SOMATROPIN
     Indication: GROWTH HORMONE DEFICIENCY
  6. HYDROCORTISONE. [Concomitant]
     Active Substance: HYDROCORTISONE
     Indication: ADRENAL INSUFFICIENCY
     Dosage: 2.5 MG, 3X/DAY, 5 MG (HALF TABLET IN MORNING, AFTERNOON AND EVENING)
  7. PROAIR HFA [Concomitant]
     Active Substance: ALBUTEROL SULFATE
     Indication: ASTHMA
     Dosage: 2 TO 4 PUFF, AS NEEDED

REACTIONS (4)
  - Tremor [Unknown]
  - Restlessness [Unknown]
  - Middle insomnia [Unknown]
  - Formication [Unknown]

NARRATIVE: CASE EVENT DATE: 20160421
